FAERS Safety Report 17050826 (Version 2)
Quarter: 2025Q3

REPORT INFORMATION
  Report Type: Spontaneous
  Country: EU (occurrence: EU)
  Receive Date: 20191120
  Receipt Date: 20250710
  Transmission Date: 20251020
  Serious: Yes (Other)
  Sender: AUROBINDO
  Company Number: EU-ROCHE-2453345

PATIENT
  Age: 62 Year
  Sex: Male

DRUGS (2)
  1. OLANZAPINE [Suspect]
     Active Substance: OLANZAPINE
     Indication: Schizophrenia
     Route: 065
  2. CLONAZEPAM [Suspect]
     Active Substance: CLONAZEPAM
     Indication: Schizophrenia
     Route: 065

REACTIONS (6)
  - Psychiatric symptom [Unknown]
  - Delusion of replacement [Unknown]
  - Fatigue [Unknown]
  - Product dose omission issue [Unknown]
  - Hallucination [Unknown]
  - Delusion [Unknown]
